FAERS Safety Report 13359350 (Version 1)
Quarter: 2017Q1

REPORT INFORMATION
  Report Type: Spontaneous
  Country: US (occurrence: US)
  Receive Date: 20170322
  Receipt Date: 20170322
  Transmission Date: 20170429
  Serious: No
  Sender: FDA-Public Use
  Company Number: US-DEPOMED, INC.-US-2016DEP012221

PATIENT

DRUGS (5)
  1. LYRICA [Suspect]
     Active Substance: PREGABALIN
     Indication: BURNING SENSATION
  2. LYRICA [Suspect]
     Active Substance: PREGABALIN
     Indication: BACK DISORDER
     Dosage: UNK
     Route: 048
     Dates: start: 201608, end: 201609
  3. GRALISE [Suspect]
     Active Substance: GABAPENTIN
     Indication: BACK DISORDER
     Dosage: UNK
     Route: 048
     Dates: start: 20160811, end: 20160825
  4. GRALISE [Suspect]
     Active Substance: GABAPENTIN
     Indication: BURNING SENSATION
  5. IBUPROFEN. [Concomitant]
     Active Substance: IBUPROFEN
     Indication: PAIN
     Dosage: UNK
     Route: 048

REACTIONS (3)
  - Product use issue [Recovered/Resolved]
  - Constipation [Recovered/Resolved]
  - Dyspepsia [Recovered/Resolved]

NARRATIVE: CASE EVENT DATE: 2016
